FAERS Safety Report 4724600-4 (Version None)
Quarter: 2005Q3

REPORT INFORMATION
  Report Type: 
  Country: None (occurrence: None)
  Receive Date: 20050719
  Receipt Date: 20050719
  Transmission Date: 20060218
  Serious: Yes (Hospitalization)
  Sender: FDA-Public Use
  Company Number: None

PATIENT
  Sex: Male

DRUGS (11)
  1. ATENOLOL [Suspect]
     Indication: HYPERTENSION
     Dosage: 75 MG   DAILY   ORAL
     Route: 048
     Dates: start: 20040530, end: 20050424
  2. ASPIRIN [Concomitant]
  3. CAPSAICIN [Concomitant]
  4. CARBIDOPA AND LEVODOPA [Concomitant]
  5. CYANOCOBALAMIN [Concomitant]
  6. FINASTERIDE [Concomitant]
  7. FOLIC ACID [Concomitant]
  8. GLYBURIDE [Concomitant]
  9. LISINOPRIL [Concomitant]
  10. PSYLLIUM [Concomitant]
  11. TERAZOSIN [Concomitant]

REACTIONS (3)
  - ASTHENIA [None]
  - BRADYCARDIA [None]
  - FATIGUE [None]
